FAERS Safety Report 10936780 (Version 2)
Quarter: 2015Q2

REPORT INFORMATION
  Report Type: Spontaneous
  Country: US (occurrence: US)
  Receive Date: 20150321
  Receipt Date: 20150525
  Transmission Date: 20150821
  Serious: No
  Sender: FDA-Public Use
  Company Number: US-JNJFOC-20140112527

PATIENT
  Age: 42 Year
  Sex: Female

DRUGS (15)
  1. TOPIRAMATE. [Suspect]
     Active Substance: TOPIRAMATE
     Indication: GENERALISED ANXIETY DISORDER
     Route: 048
  2. LAMOTRIGINE. [Concomitant]
     Active Substance: LAMOTRIGINE
     Indication: DEPRESSION
     Route: 065
  3. TOPIRAMATE. [Suspect]
     Active Substance: TOPIRAMATE
     Indication: BIPOLAR DISORDER
     Route: 048
  4. TOPIRAMATE. [Suspect]
     Active Substance: TOPIRAMATE
     Indication: BIPOLAR DISORDER
     Route: 048
  5. LAMOTRIGINE. [Concomitant]
     Active Substance: LAMOTRIGINE
     Indication: ANXIETY
     Route: 065
  6. TOPIRAMATE. [Suspect]
     Active Substance: TOPIRAMATE
     Indication: COMPULSIVE SHOPPING
     Route: 048
  7. ARIPIPRAZOLE. [Concomitant]
     Active Substance: ARIPIPRAZOLE
     Indication: DEPRESSION
     Route: 065
  8. TOPIRAMATE. [Suspect]
     Active Substance: TOPIRAMATE
     Indication: GENERALISED ANXIETY DISORDER
     Route: 048
  9. LAMOTRIGINE. [Concomitant]
     Active Substance: LAMOTRIGINE
     Indication: DEPRESSION
     Route: 065
  10. TOPIRAMATE. [Suspect]
     Active Substance: TOPIRAMATE
     Indication: GENERALISED ANXIETY DISORDER
     Route: 048
  11. LAMOTRIGINE. [Concomitant]
     Active Substance: LAMOTRIGINE
     Indication: ANXIETY
     Route: 065
  12. TOPIRAMATE. [Suspect]
     Active Substance: TOPIRAMATE
     Indication: BIPOLAR DISORDER
     Route: 048
  13. TOPIRAMATE. [Suspect]
     Active Substance: TOPIRAMATE
     Indication: COMPULSIVE SHOPPING
     Route: 048
  14. TOPIRAMATE. [Suspect]
     Active Substance: TOPIRAMATE
     Indication: COMPULSIVE SHOPPING
     Route: 048
  15. ARIPIPRAZOLE. [Concomitant]
     Active Substance: ARIPIPRAZOLE
     Indication: ANXIETY
     Route: 065

REACTIONS (2)
  - Therapeutic response unexpected [Recovering/Resolving]
  - Off label use [Recovering/Resolving]
